FAERS Safety Report 12173515 (Version 1)
Quarter: 2016Q1

REPORT INFORMATION
  Report Type: Spontaneous
  Country: US (occurrence: US)
  Receive Date: 20160311
  Receipt Date: 20160311
  Transmission Date: 20160526
  Serious: No
  Sender: FDA-Public Use
  Company Number: US-BIOMARINAP-US-2016-109057

PATIENT
  Age: 13 Year
  Sex: Male
  Weight: 20.3 kg

DRUGS (1)
  1. VIMIZIM [Suspect]
     Active Substance: ELOSULFASE ALFA
     Indication: MUCOPOLYSACCHARIDOSIS IV
     Dosage: UNK UNK, QW
     Route: 042
     Dates: start: 20160212

REACTIONS (2)
  - Pruritus [Unknown]
  - Rash generalised [Unknown]

NARRATIVE: CASE EVENT DATE: 20160223
